FAERS Safety Report 21399595 (Version 1)
Quarter: 2022Q4

REPORT INFORMATION
  Report Type: Report from Study
  Country: CA (occurrence: CA)
  Receive Date: 20221001
  Receipt Date: 20221001
  Transmission Date: 20230113
  Serious: Yes (Other)
  Sender: FDA-Public Use
  Company Number: CA-TEVA-2022-CA-2077977

PATIENT
  Age: 72 Year
  Sex: Female

DRUGS (3)
  1. OCTREOTIDE [Suspect]
     Active Substance: OCTREOTIDE
     Indication: Carcinoid tumour
     Dosage: DOSE: 30MG EVERY 4 WEEKS
     Route: 030
     Dates: start: 20220308
  2. ATIVAN [Concomitant]
     Active Substance: LORAZEPAM
     Indication: Blood pressure increased
  3. BENEDRIL [Concomitant]
     Indication: Product used for unknown indication

REACTIONS (2)
  - Carcinoid tumour of the stomach [Unknown]
  - Tumour pain [Unknown]

NARRATIVE: CASE EVENT DATE: 20220101
